FAERS Safety Report 17432662 (Version 1)
Quarter: 2020Q1

REPORT INFORMATION
  Report Type: Spontaneous
  Country: IT (occurrence: IT)
  Receive Date: 20200218
  Receipt Date: 20200218
  Transmission Date: 20200409
  Serious: Yes (Other)
  Sender: FDA-Public Use
  Company Number: IT-CELLTRION INC.-2020IT019322

PATIENT

DRUGS (6)
  1. TRUXIMA [Suspect]
     Active Substance: RITUXIMAB-ABBS
     Indication: RHEUMATOID ARTHRITIS
  2. ETANERCEPT [Suspect]
     Active Substance: ETANERCEPT
     Indication: CRYOGLOBULINAEMIA
     Dosage: 50 MG/WEEK
  3. ETANERCEPT [Suspect]
     Active Substance: ETANERCEPT
     Indication: RHEUMATOID ARTHRITIS
  4. TRUXIMA [Suspect]
     Active Substance: RITUXIMAB-ABBS
     Indication: CRYOGLOBULINAEMIA
     Dosage: 1000 MG EVERY OTHER WEEK
  5. METHOTREXATE. [Suspect]
     Active Substance: METHOTREXATE
     Indication: CRYOGLOBULINAEMIA
     Dosage: 10 MG WEEKLY
  6. METHOTREXATE. [Suspect]
     Active Substance: METHOTREXATE
     Indication: RHEUMATOID ARTHRITIS

REACTIONS (4)
  - Condition aggravated [Recovered/Resolved]
  - Hypersensitivity vasculitis [Recovered/Resolved]
  - Product use in unapproved indication [Unknown]
  - Cryoglobulinaemia [Recovered/Resolved]
